FAERS Safety Report 9786981 (Version 1)
Quarter: 2013Q4

REPORT INFORMATION
  Report Type: Spontaneous
  Country: US (occurrence: US)
  Receive Date: 20131227
  Receipt Date: 20131227
  Transmission Date: 20140711
  Serious: Yes (Other)
  Sender: FDA-Public Use
  Company Number: CHPA2013US018764

PATIENT
  Age: 67 Year
  Sex: Female

DRUGS (3)
  1. GAS-X EXTRA STRENGTH SOFTGELS [Suspect]
     Indication: ABDOMINAL DISCOMFORT
     Dosage: 1 DF, UNK
     Route: 048
  2. GAS-X EXTRA STRENGTH SOFTGELS [Suspect]
     Indication: ABDOMINAL DISTENSION
  3. DOCQLACE [Concomitant]
     Dosage: UNK
     Route: 048
     Dates: start: 20131217

REACTIONS (5)
  - Hernia [Unknown]
  - Procedural pain [Unknown]
  - Abdominal discomfort [Unknown]
  - Abdominal distension [Unknown]
  - Disease recurrence [Unknown]
